FAERS Safety Report 14346283 (Version 4)
Quarter: 2018Q1

REPORT INFORMATION
  Report Type: Spontaneous
  Country: US (occurrence: US)
  Receive Date: 20180103
  Receipt Date: 20180309
  Transmission Date: 20180509
  Serious: Yes (Death, Hospitalization, Other)
  Sender: FDA-Public Use
  Company Number: US-PFIZER INC-2018001683

PATIENT
  Age: 83 Year
  Sex: Female
  Weight: 65.31 kg

DRUGS (3)
  1. IBRANCE [Suspect]
     Active Substance: PALBOCICLIB
     Indication: BREAST CANCER
     Dosage: 125 MG, CYCLIC (1 PILL DAILY FOR 3 WEEKS THEN SHE WAS OFF OF IT FOR ONE WEEK)
     Route: 048
  2. IBRANCE [Suspect]
     Active Substance: PALBOCICLIB
     Indication: BONE CANCER
     Dosage: 125 MG, CYCLIC (1 PILL DAILY FOR 3 WEEKS THEN SHE WAS OFF OF IT FOR ONE WEEK)
     Route: 048
  3. IBRANCE [Suspect]
     Active Substance: PALBOCICLIB
     Dosage: 125 MG, CYCLIC (1 PILL DAILY FOR 3 WEEKS THEN SHE WAS OFF OF IT FOR ONE WEEK)
     Route: 048

REACTIONS (8)
  - Sepsis [Unknown]
  - Streptococcal infection [Recovered/Resolved]
  - Thrombosis [Fatal]
  - Chronic obstructive pulmonary disease [Fatal]
  - Influenza [Fatal]
  - Neoplasm progression [Fatal]
  - Cardiac failure congestive [Fatal]
  - Pneumonia [Unknown]

NARRATIVE: CASE EVENT DATE: 20171214
